FAERS Safety Report 7030790-3 (Version None)
Quarter: 2010Q4

REPORT INFORMATION
  Report Type: 
  Country: None (occurrence: None)
  Receive Date: 20101006
  Receipt Date: 20100930
  Transmission Date: 20110411
  Serious: No
  Sender: FDA-Public Use
  Company Number: US-PFIZER INC-2010124845

PATIENT
  Age: 68 Year
  Sex: Male
  Weight: 86.168 kg

DRUGS (4)
  1. CHANTIX [Suspect]
     Indication: SMOKING CESSATION THERAPY
     Dosage: 0.5 MG, 1X/DAY
     Route: 048
     Dates: start: 20100921
  2. ACETYLSALICYLIC ACID [Concomitant]
     Indication: SUPPLEMENTATION THERAPY
     Dosage: 81 MG, 1X/DAY
     Route: 048
  3. PROPRANOLOL [Concomitant]
     Indication: TREMOR
     Dosage: 20 MG, 2X/DAY
     Route: 048
  4. GABAPENTIN [Concomitant]
     Indication: TREMOR
     Dosage: 300 MG, AS NEEDED
     Route: 048

REACTIONS (2)
  - INSOMNIA [None]
  - WEIGHT INCREASED [None]
